FAERS Safety Report 14282159 (Version 1)
Quarter: 2017Q4

REPORT INFORMATION
  Report Type: Spontaneous
  Country: FR (occurrence: FR)
  Receive Date: 20171213
  Receipt Date: 20171213
  Transmission Date: 20180321
  Serious: Yes (Other)
  Sender: FDA-Public Use
  Company Number: FR-PFIZER INC-2017528221

PATIENT
  Age: 66 Year
  Sex: Female

DRUGS (3)
  1. HUMIRA [Suspect]
     Active Substance: ADALIMUMAB
     Indication: ERYTHRODERMIC PSORIASIS
     Dosage: 9 INJECTIONS AU TOTAL
     Route: 058
     Dates: start: 20160122, end: 20160613
  2. STELARA [Suspect]
     Active Substance: USTEKINUMAB
     Indication: ERYTHRODERMIC PSORIASIS
     Dosage: 2 INJECTIONS AT TOTAL
     Route: 058
     Dates: start: 20160713, end: 20160813
  3. METHOTREXATE SODIUM. [Suspect]
     Active Substance: METHOTREXATE SODIUM
     Indication: ERYTHRODERMIC PSORIASIS
     Dosage: 20 MG, WEEKLY
     Route: 048
     Dates: start: 20151201, end: 20160115

REACTIONS (1)
  - Breast cancer [Unknown]

NARRATIVE: CASE EVENT DATE: 20160713
